FAERS Safety Report 11665585 (Version 1)
Quarter: 2015Q4

REPORT INFORMATION
  Report Type: Spontaneous
  Country: US (occurrence: US)
  Receive Date: 20151027
  Receipt Date: 20151027
  Transmission Date: 20160304
  Serious: Yes (Disabling, Other)
  Sender: FDA-Public Use
  Company Number: US-BAYER-2015-446568

PATIENT
  Sex: Female

DRUGS (2)
  1. LEVOFLOXACIN. [Suspect]
     Active Substance: LEVOFLOXACIN
     Dosage: 1000 MG, UNK
  2. CIPRO [Suspect]
     Active Substance: CIPROFLOXACIN HYDROCHLORIDE
     Indication: INFECTION
     Dosage: 1000 MG, UNK

REACTIONS (10)
  - Fall [None]
  - Movement disorder [None]
  - Paralysis [None]
  - Eyelid disorder [None]
  - Muscle spasms [None]
  - Quadriplegia [None]
  - Pain [None]
  - VIIth nerve paralysis [None]
  - Muscular weakness [None]
  - Impaired work ability [None]
